FAERS Safety Report 14648612 (Version 6)
Quarter: 2018Q2

REPORT INFORMATION
  Report Type: Report from Study
  Country: US (occurrence: US)
  Receive Date: 20180316
  Receipt Date: 20180524
  Transmission Date: 20180711
  Serious: Yes (Hospitalization, Other)
  Sender: FDA-Public Use
  Company Number: US-GILEAD-2018-0325749

PATIENT
  Age: 39 Year
  Sex: Female

DRUGS (7)
  1. ADCIRCA [Suspect]
     Active Substance: TADALAFIL
     Indication: PULMONARY HYPERTENSION
     Dosage: 40 MG, QD
     Route: 065
     Dates: start: 20151128
  2. EPOPROSTENOL. [Suspect]
     Active Substance: EPOPROSTENOL
     Indication: PULMONARY HYPERTENSION
     Dosage: 40 UG/KG, Q1MINUTE
     Route: 065
  3. ADCIRCA [Suspect]
     Active Substance: TADALAFIL
     Dosage: 20 MG, BID
     Route: 065
  4. AMBRISENTAN [Suspect]
     Active Substance: AMBRISENTAN
     Dosage: 10 MG, QD
     Route: 065
  5. EPOPROSTENOL. [Suspect]
     Active Substance: EPOPROSTENOL
     Dosage: 1.5 MG, UNK
     Route: 065
  6. AMBRISENTAN [Suspect]
     Active Substance: AMBRISENTAN
     Indication: PULMONARY HYPERTENSION
     Dosage: 10 MG, QD
     Route: 065
     Dates: start: 20100908, end: 20180510
  7. EPOPROSTENOL. [Suspect]
     Active Substance: EPOPROSTENOL
     Dosage: 40 NG, Q1SECOND
     Route: 065

REACTIONS (10)
  - Urinary tract infection [Not Recovered/Not Resolved]
  - Staphylococcal infection [Unknown]
  - Spleen congestion [Not Recovered/Not Resolved]
  - Platelet count decreased [Unknown]
  - Chest X-ray abnormal [Not Recovered/Not Resolved]
  - Drug dose omission [Recovered/Resolved]
  - Abdominal distension [Not Recovered/Not Resolved]
  - Drug dose omission [Unknown]
  - Hypotension [Not Recovered/Not Resolved]
  - Oedema peripheral [Not Recovered/Not Resolved]

NARRATIVE: CASE EVENT DATE: 20180423
